FAERS Safety Report 12473209 (Version 2)
Quarter: 2016Q3

REPORT INFORMATION
  Report Type: Spontaneous
  Country: US (occurrence: US)
  Receive Date: 20160616
  Receipt Date: 20160705
  Transmission Date: 20161109
  Serious: Yes (Hospitalization, Other)
  Sender: FDA-Public Use
  Company Number: US-ELI_LILLY_AND_COMPANY-US201606003950

PATIENT
  Age: 72 Year
  Sex: Female

DRUGS (12)
  1. CLONOPIN [Concomitant]
     Active Substance: CLONAZEPAM
  2. MELATONIN [Concomitant]
     Active Substance: MELATONIN
  3. NEXIUM [Concomitant]
     Active Substance: ESOMEPRAZOLE MAGNESIUM
  4. SEROQUEL [Concomitant]
     Active Substance: QUETIAPINE FUMARATE
  5. CALCIUM [Concomitant]
     Active Substance: CALCIUM
  6. VESICARE [Concomitant]
     Active Substance: SOLIFENACIN SUCCINATE
  7. LEVOTHYROXINE. [Concomitant]
     Active Substance: LEVOTHYROXINE
  8. ZOLOFT [Concomitant]
     Active Substance: SERTRALINE HYDROCHLORIDE
  9. CELEBREX [Concomitant]
     Active Substance: CELECOXIB
  10. LAMICTAL [Concomitant]
     Active Substance: LAMOTRIGINE
  11. FORTEO [Suspect]
     Active Substance: TERIPARATIDE
     Indication: OSTEOPOROSIS
     Dosage: UNK
     Route: 065
     Dates: start: 201411
  12. GABAPENTIN. [Concomitant]
     Active Substance: GABAPENTIN

REACTIONS (5)
  - Balance disorder [Unknown]
  - Fall [Unknown]
  - Joint dislocation [Recovering/Resolving]
  - Ankle fracture [Recovering/Resolving]
  - Gait disturbance [Unknown]

NARRATIVE: CASE EVENT DATE: 20160313
